FAERS Safety Report 21966958 (Version 1)
Quarter: 2023Q1

REPORT INFORMATION
  Report Type: Spontaneous
  Country: US (occurrence: None)
  Receive Date: 20230206
  Receipt Date: 20230206
  Transmission Date: 20230418
  Serious: Yes (Disabling, Other)
  Sender: FDA-Public Use
  Company Number: None

PATIENT
  Age: 26 Year
  Sex: Female
  Weight: 54 kg

DRUGS (1)
  1. ARTIFICIAL TEARS LUBRICANT EYE DROPS (CARBOXYMETHYLCELLULOSE SODIUM) [Suspect]
     Active Substance: CARBOXYMETHYLCELLULOSE SODIUM
     Indication: Dry eye
     Dosage: FREQUENCY : AS NEEDED;?
     Route: 047
     Dates: start: 20221101, end: 20230201

REACTIONS (12)
  - Suspected product tampering [None]
  - Product contamination microbial [None]
  - Product quality issue [None]
  - Sinusitis [None]
  - Eye infection bacterial [None]
  - Ocular hyperaemia [None]
  - Eye discharge [None]
  - Periorbital swelling [None]
  - Skin discolouration [None]
  - Respiratory tract congestion [None]
  - Respiratory tract infection [None]
  - Product quality issue [None]

NARRATIVE: CASE EVENT DATE: 20221112
